FAERS Safety Report 4684343-2 (Version None)
Quarter: 2005Q2

REPORT INFORMATION
  Report Type: 
  Country: None (occurrence: None)
  Receive Date: 20050531
  Receipt Date: 20050119
  Transmission Date: 20051028
  Serious: Yes (Other)
  Sender: FDA-Public Use
  Company Number: USA030741883

PATIENT
  Age: 45 Year
  Sex: Male
  Weight: 98 kg

DRUGS (6)
  1. ZYPREXA [Suspect]
     Indication: BIPOLAR DISORDER
     Dosage: 25 MG/DAY
     Dates: start: 20020901, end: 20030301
  2. DEPAKOTE [Concomitant]
  3. NEURONTIN [Concomitant]
  4. BUSPAR [Concomitant]
  5. AMBIEN [Concomitant]
  6. KLONOPIN [Concomitant]

REACTIONS (8)
  - ANXIETY [None]
  - BLOOD GLUCOSE INCREASED [None]
  - DEPRESSION [None]
  - DIABETES MELLITUS [None]
  - DYSURIA [None]
  - GLUCOSE URINE PRESENT [None]
  - PRESCRIBED OVERDOSE [None]
  - WEIGHT INCREASED [None]
